FAERS Safety Report 21033401 (Version 1)
Quarter: 2022Q3

REPORT INFORMATION
  Report Type: Other
  Country: None (occurrence: SI)
  Receive Date: 20220701
  Receipt Date: 20220701
  Transmission Date: 20221027
  Serious: Yes (Other)
  Sender: FDA-Public Use
  Company Number: SI-MLV Pharma LLC-2130483

PATIENT
  Sex: Female

DRUGS (4)
  1. BETAMETHASONE DIPROPIONATE [Suspect]
     Active Substance: BETAMETHASONE DIPROPIONATE
     Indication: Pyoderma gangrenosum
     Route: 061
  2. GENTAMICIN [Suspect]
     Active Substance: GENTAMICIN
     Route: 061
  3. DOXYCYCLINE [Suspect]
     Active Substance: DOXYCYCLINE
     Route: 048
  4. METHYLPREDNISOLONE [Suspect]
     Active Substance: METHYLPREDNISOLONE
     Route: 065

REACTIONS (8)
  - Off label use [Recovered/Resolved]
  - Drug ineffective [Unknown]
  - Toxicity to various agents [None]
  - Panic disorder [None]
  - Hypertension [None]
  - Weight increased [None]
  - Abscess [None]
  - Ulcer [None]
